FAERS Safety Report 15899146 (Version 1)
Quarter: 2019Q1

REPORT INFORMATION
  Report Type: Spontaneous
  Country: FR (occurrence: FR)
  Receive Date: 20190201
  Receipt Date: 20190201
  Transmission Date: 20190417
  Serious: Yes (Hospitalization)
  Sender: FDA-Public Use
  Company Number: FR-AUROBINDO-AUR-APL-2019-004208

PATIENT
  Age: 89 Year
  Sex: Female
  Weight: 54 kg

DRUGS (14)
  1. MYCOSTER [Suspect]
     Active Substance: CICLOPIROX\CICLOPIROX OLAMINE
     Indication: DERMATOPHYTOSIS
     Dosage: 1X/J SUR LES ONGLES
     Route: 003
     Dates: start: 201808, end: 20181120
  2. SULFARLEM [Suspect]
     Active Substance: ANETHOLTRITHION
     Indication: APTYALISM
     Dosage: 150 MILLIGRAM, ONCE A DAY, 2-2-2
     Route: 048
     Dates: start: 201808
  3. TRAMADOL. [Suspect]
     Active Substance: TRAMADOL
     Indication: PAIN
     Dosage: 5 DROP, ONCE A DAY
     Route: 048
     Dates: end: 201808
  4. LERCAN [Suspect]
     Active Substance: LERCANIDIPINE
     Indication: HYPERTENSION
     Dosage: 10 MILLIGRAM, ONCE A DAY, 0-0-1
     Route: 048
     Dates: start: 2016
  5. LASILIX [Suspect]
     Active Substance: FUROSEMIDE
     Indication: HYPERTENSION
     Dosage: 40 MILLIGRAM, ONCE A DAY, 1-0-0
     Route: 048
     Dates: start: 2016
  6. BISOCE [Suspect]
     Active Substance: BISOPROLOL
     Indication: CARDIAC FAILURE
     Dosage: 2.5 MILLIGRAM, ONCE A DAY, 1-0-0
     Route: 048
     Dates: start: 2016
  7. STAGID [Suspect]
     Active Substance: METFORMIN PAMOATE
     Indication: TYPE 2 DIABETES MELLITUS
     Dosage: 2100 MILLIGRAM, ONCE A DAY
     Route: 048
     Dates: start: 201808
  8. VITAMINE B12 [Suspect]
     Active Substance: CYANOCOBALAMIN
     Indication: HYPOVITAMINOSIS
     Dosage: 1 DOSAGE FORM, EVERY WEEK, 1-0-0
     Route: 048
     Dates: start: 201808, end: 20181120
  9. LEVOTHYROX [Suspect]
     Active Substance: LEVOTHYROXINE
     Indication: HYPOTHYROIDISM
     Dosage: 50 MICROGRAM, ONCE A DAY, 1-0-0
     Route: 048
     Dates: start: 2016
  10. ALPRAZOLAM. [Suspect]
     Active Substance: ALPRAZOLAM
     Indication: ANXIETY
     Dosage: 1 MILLIGRAM, ONCE A DAY, 1-0.5-1 (0.25MG)
     Route: 048
     Dates: start: 2016
  11. ANAFRANIL [Suspect]
     Active Substance: CLOMIPRAMINE HYDROCHLORIDE
     Indication: DEPRESSION
     Dosage: 75 MILLIGRAM, ONCE A DAY, 1-0-0
     Route: 048
     Dates: start: 2016
  12. DOLIPRANE [Suspect]
     Active Substance: ACETAMINOPHEN
     Indication: PAIN
     Dosage: 4 GRAM, ONCE A DAY, 2-2-2-2
     Route: 048
     Dates: start: 2016
  13. LYSANXIA [Suspect]
     Active Substance: PRAZEPAM
     Indication: ANXIETY
     Dosage: 10 GTT DROPS, ONCE A DAY, 5-0-5 (GOUTTES) SB
     Route: 048
     Dates: start: 201808, end: 20181120
  14. MODOPAR [Suspect]
     Active Substance: BENSERAZIDE HYDROCHLORIDE\LEVODOPA
     Indication: PARKINSON^S DISEASE
     Dosage: 2 DOSAGE FORM, ONCE A DAY, 1-0-1
     Route: 048
     Dates: start: 2016, end: 20181122

REACTIONS (2)
  - General physical health deterioration [Not Recovered/Not Resolved]
  - Fall [Not Recovered/Not Resolved]

NARRATIVE: CASE EVENT DATE: 20181107
